FAERS Safety Report 18342915 (Version 4)
Quarter: 2022Q3

REPORT INFORMATION
  Report Type: Spontaneous
  Country: US (occurrence: None)
  Receive Date: 20201005
  Receipt Date: 20220805
  Transmission Date: 20221027
  Serious: Yes (Hospitalization, Disabling, Other)
  Sender: FDA-Public Use
  Company Number: 2020SF27421

PATIENT
  Age: 15580 Day
  Sex: Male
  Weight: 129.3 kg

DRUGS (56)
  1. XIGDUO XR [Suspect]
     Active Substance: DAPAGLIFLOZIN PROPANEDIOL\METFORMIN HYDROCHLORIDE
     Indication: Type 2 diabetes mellitus
     Route: 048
     Dates: start: 20160216, end: 20160503
  2. XIGDUO XR [Suspect]
     Active Substance: DAPAGLIFLOZIN PROPANEDIOL\METFORMIN HYDROCHLORIDE
     Indication: Weight decreased
     Route: 048
     Dates: start: 20160216, end: 20160503
  3. XIGDUO XR [Suspect]
     Active Substance: DAPAGLIFLOZIN PROPANEDIOL\METFORMIN HYDROCHLORIDE
     Indication: Blood pressure decreased
     Route: 048
     Dates: start: 20160216, end: 20160503
  4. XIGDUO XR [Suspect]
     Active Substance: DAPAGLIFLOZIN PROPANEDIOL\METFORMIN HYDROCHLORIDE
     Indication: Type 2 diabetes mellitus
     Route: 048
     Dates: start: 20160216, end: 20160718
  5. XIGDUO XR [Suspect]
     Active Substance: DAPAGLIFLOZIN PROPANEDIOL\METFORMIN HYDROCHLORIDE
     Indication: Weight decreased
     Route: 048
     Dates: start: 20160216, end: 20160718
  6. XIGDUO XR [Suspect]
     Active Substance: DAPAGLIFLOZIN PROPANEDIOL\METFORMIN HYDROCHLORIDE
     Indication: Blood pressure decreased
     Route: 048
     Dates: start: 20160216, end: 20160718
  7. PRAVACHOL [Concomitant]
     Active Substance: PRAVASTATIN SODIUM
  8. MAXZIDE [Concomitant]
     Active Substance: HYDROCHLOROTHIAZIDE\TRIAMTERENE
  9. COREG [Concomitant]
     Active Substance: CARVEDILOL
  10. LISINOPRIL [Concomitant]
     Active Substance: LISINOPRIL
     Dates: start: 2016
  11. PRILOSEC [Concomitant]
     Active Substance: OMEPRAZOLE MAGNESIUM
  12. ZOLOFT [Concomitant]
     Active Substance: SERTRALINE HYDROCHLORIDE
  13. GLUCOPHAGE [Concomitant]
     Active Substance: METFORMIN HYDROCHLORIDE
  14. ASPIRIN [Concomitant]
     Active Substance: ASPIRIN
  15. NITROSTAT [Concomitant]
     Active Substance: NITROGLYCERIN
  16. HYDRALAZINE [Concomitant]
     Active Substance: HYDRALAZINE HYDROCHLORIDE
  17. ACETAMINOPHEN [Concomitant]
     Active Substance: ACETAMINOPHEN
  18. VANCOMYCIN [Concomitant]
     Active Substance: VANCOMYCIN
  19. PROTONIX [Concomitant]
     Active Substance: PANTOPRAZOLE SODIUM
  20. DULCOLAX NOS [Concomitant]
     Active Substance: BISACODYL OR DOCUSATE SODIUM
  21. AMBIEN [Concomitant]
     Active Substance: ZOLPIDEM TARTRATE
  22. ZOSYN [Concomitant]
     Active Substance: PIPERACILLIN SODIUM\TAZOBACTAM SODIUM
  23. VITAMINS [Concomitant]
     Active Substance: VITAMINS
  24. TRULICITY [Concomitant]
     Active Substance: DULAGLUTIDE
  25. GLUCOTROL [Concomitant]
     Active Substance: GLIPIZIDE
  26. AZITHROMYCIN [Concomitant]
     Active Substance: AZITHROMYCIN
  27. MUCINEX [Concomitant]
     Active Substance: GUAIFENESIN
  28. HEPARIN [Concomitant]
     Active Substance: HEPARIN SODIUM
  29. QUERCETIN/ACETYLCYSTEINE/THIOCTIC ACID/MECOBALAMIN/SELENOMETHIONINE/(6 [Concomitant]
  30. WESTCORT [Concomitant]
     Active Substance: HYDROCORTISONE VALERATE
  31. VITAMIN D [Concomitant]
     Active Substance: VITAMIN D NOS
  32. TRAIMCINOLONE [Concomitant]
  33. LOTRISONE [Concomitant]
     Active Substance: BETAMETHASONE DIPROPIONATE\CLOTRIMAZOLE
  34. NEOMYCIN [Concomitant]
     Active Substance: NEOMYCIN
  35. LEXAPRO [Concomitant]
     Active Substance: ESCITALOPRAM OXALATE
  36. METFORMIN [Concomitant]
     Active Substance: METFORMIN HYDROCHLORIDE
  37. CITALOPRAM [Concomitant]
     Active Substance: CITALOPRAM HYDROBROMIDE
  38. CYCLOBENZAPRINE [Concomitant]
     Active Substance: CYCLOBENZAPRINE
  39. ALPRAZOLAM [Concomitant]
     Active Substance: ALPRAZOLAM
  40. ROPINIROLE HYDROCHLORIDE [Concomitant]
     Active Substance: ROPINIROLE HYDROCHLORIDE
  41. SILDENAFIL [Concomitant]
     Active Substance: SILDENAFIL
     Dates: start: 20180814
  42. NABUMETONE [Concomitant]
     Active Substance: NABUMETONE
     Dates: start: 20190617
  43. PREDNISONE [Concomitant]
     Active Substance: PREDNISONE
     Dates: start: 20190617
  44. MELOXICAM [Concomitant]
     Active Substance: MELOXICAM
     Dates: start: 20190218
  45. KOMBIGLYZE XR [Concomitant]
     Active Substance: METFORMIN HYDROCHLORIDE\SAXAGLIPTIN HYDROCHLORIDE
  46. CLOTRI [Concomitant]
  47. INDOMETHACIN [Concomitant]
     Active Substance: INDOMETHACIN
  48. SERTRALINE [Concomitant]
     Active Substance: SERTRALINE HYDROCHLORIDE
     Dates: start: 2016
  49. JANUMET [Concomitant]
     Active Substance: METFORMIN HYDROCHLORIDE\SITAGLIPTIN PHOSPHATE
  50. PRAVASTATIN [Concomitant]
     Active Substance: PRAVASTATIN
  51. GLIMEPIRIDE [Concomitant]
     Active Substance: GLIMEPIRIDE
  52. CEFDINIR [Concomitant]
     Active Substance: CEFDINIR
  53. ANDROSTENEDIOL/THYROID/TESTOSTERONE/ANDROSTENEDIONE/ESTRONE/PREGNENOLO [Concomitant]
  54. HYDROCHLOROTHIAZIDE\TRIAMTERENE [Concomitant]
     Active Substance: HYDROCHLOROTHIAZIDE\TRIAMTERENE
     Dates: start: 2018
  55. CARVEDILOL [Concomitant]
     Active Substance: CARVEDILOL
     Dates: start: 2016
  56. GLIPIZIDE [Concomitant]
     Active Substance: GLIPIZIDE
     Dates: start: 2016

REACTIONS (10)
  - Necrotising fasciitis [Unknown]
  - Perineal abscess [Unknown]
  - Groin abscess [Unknown]
  - Abscess limb [Unknown]
  - Cellulitis [Unknown]
  - Perineal cellulitis [Unknown]
  - Fournier^s gangrene [Unknown]
  - Sepsis [Unknown]
  - Anxiety [Unknown]
  - Depression [Unknown]

NARRATIVE: CASE EVENT DATE: 20160503
